FAERS Safety Report 10512760 (Version 1)
Quarter: 2014Q4

REPORT INFORMATION
  Report Type: Spontaneous
  Country: US (occurrence: US)
  Receive Date: 20141013
  Receipt Date: 20141013
  Transmission Date: 20150528
  Serious: Yes (Other)
  Sender: FDA-Public Use
  Company Number: US-CIPLA LTD.-2014US01541

PATIENT

DRUGS (18)
  1. BORTEZOMIB [Suspect]
     Active Substance: BORTEZOMIB
     Dosage: 0.8 MG/M2 (DOSE LEVEL 2), DAYS 1, 4, 8 AND 11 OF EACH 21 DAY CYCLE
     Route: 042
  2. RANITIDINE [Concomitant]
     Active Substance: RANITIDINE\RANITIDINE HYDROCHLORIDE
     Indication: PREMEDICATION
     Dosage: 50 MG, UNK
     Route: 042
  3. FAMOTIDINE. [Concomitant]
     Active Substance: FAMOTIDINE
     Indication: PREMEDICATION
     Dosage: 20 MG, UNK
     Route: 042
  4. DEXAMETHASONE. [Concomitant]
     Active Substance: DEXAMETHASONE
     Indication: PREMEDICATION
     Dosage: 10-20 MG, 30 MINS PRIOR TO PACLITAXEL
     Route: 048
  5. BACTRIM [Concomitant]
     Active Substance: SULFAMETHOXAZOLE\TRIMETHOPRIM
     Indication: PREMEDICATION
     Dosage: 1 TABLET, BID, TWICE PER WEEK CONTINUOUSLY DURING TREATMENT
  6. PACLITAXEL. [Suspect]
     Active Substance: PACLITAXEL
     Indication: NON-SMALL CELL LUNG CANCER
     Dosage: 120 MG/M2 (LEVEL -1), OVER 3 HOURS ON DAY 2 OF EACH 21 DAY CYCLE
     Route: 042
  7. RADIATION [Suspect]
     Active Substance: RADIATION THERAPY
     Indication: NON-SMALL CELL LUNG CANCER
     Dosage: 2 GY, QD
  8. BORTEZOMIB [Suspect]
     Active Substance: BORTEZOMIB
     Dosage: 1.2 MG/M2 (DOSE LEVEL 6), DAYS 1, 4, 8 AND 11 OF EACH 21 DAY CYCLE
     Route: 042
  9. CARBOPLATIN. [Suspect]
     Active Substance: CARBOPLATIN
     Indication: NON-SMALL CELL LUNG CANCER
     Dosage: 5 AUC (DOSE LEVEL -1 TO 4), AS A 30-MINUTE IV INFUSION ON DAY 2 OF EACH 21 DAY CYCLE
  10. PACLITAXEL. [Suspect]
     Active Substance: PACLITAXEL
     Dosage: 175 MG/M2 (LEVEL 4 TO 6), OVER 3 HOURS ON DAY 2 OF EACH 21 DAY CYCLE
     Route: 042
  11. BORTEZOMIB [Suspect]
     Active Substance: BORTEZOMIB
     Indication: NON-SMALL CELL LUNG CANCER
     Dosage: 0.5 MG/M2 (DOSE LEVEL -1 TO 1), DAYS 1, 4, 8 AND 11 OF EACH 21 DAY CYCLE
     Route: 042
  12. DIPHENHYDRAMINE HCL [Concomitant]
     Active Substance: DIPHENHYDRAMINE HYDROCHLORIDE
     Indication: PREMEDICATION
     Dosage: 25-50 MG
     Route: 042
  13. CIMETIDINE [Concomitant]
     Active Substance: CIMETIDINE
     Indication: PREMEDICATION
     Dosage: 300 MG, UNK
     Route: 042
  14. CARBOPLATIN. [Suspect]
     Active Substance: CARBOPLATIN
     Dosage: 6 AUC (DOSE LEVEL 5 TO 6), AS A 30-MINUTE IV INFUSION ON DAY 2 OF EACH 21 DAY CYCLE
  15. DEXAMETHASONE. [Concomitant]
     Active Substance: DEXAMETHASONE
     Dosage: 10-20 MG, 30 MINS PRIOR TO PACLITAXEL
     Route: 042
  16. PACLITAXEL. [Suspect]
     Active Substance: PACLITAXEL
     Dosage: 135 MG/M2 (LEVEL 0), OVER 3 HOURS ON DAY 2 OF EACH 21 DAY CYCLE
     Route: 042
  17. PACLITAXEL. [Suspect]
     Active Substance: PACLITAXEL
     Dosage: 150 MG/M2 (LEVE 1 TO 3), OVER 3 HOURS ON DAY 2 OF EACH 21 DAY CYCLE
     Route: 042
  18. BORTEZOMIB [Suspect]
     Active Substance: BORTEZOMIB
     Dosage: 1.0 MG/M2 (DOSE LEVEL 3 TO 5), DAYS 1, 4, 8 AND 11 OF EACH 21 DAY CYCLE
     Route: 042

REACTIONS (1)
  - Pneumonitis [Unknown]
